FAERS Safety Report 7771564-5 (Version None)
Quarter: 2011Q3

REPORT INFORMATION
  Report Type: 
  Country: None (occurrence: None)
  Receive Date: 20110922
  Receipt Date: 20110223
  Transmission Date: 20111222
  Serious: No
  Sender: FDA-Public Use
  Company Number: US-ASTRAZENECA-2007UW02108

PATIENT
  Age: 33 Year
  Sex: Female
  Weight: 90.7 kg

DRUGS (13)
  1. DEPAKOTE [Concomitant]
     Dates: start: 20030101, end: 20050101
  2. TP AMANTADINE [Concomitant]
     Dates: start: 19981231
  3. EFFEXOR XR [Concomitant]
     Dosage: 75 MG TO 150 MG
     Dates: start: 20000330
  4. L-TYROSINE [Concomitant]
     Dates: start: 19981231
  5. SEROQUEL [Suspect]
     Indication: SCHIZOPHRENIA
     Route: 048
     Dates: start: 19991221
  6. CELEXA [Concomitant]
     Dates: start: 20001229
  7. ZYPREXA [Concomitant]
     Dates: start: 19980101
  8. PERPHENAZINE [Concomitant]
     Dosage: 4 MG TO 8 MG
     Dates: start: 19980410
  9. RISPERDAL [Concomitant]
     Dates: start: 20020101, end: 20050101
  10. SEROQUEL [Suspect]
     Route: 048
     Dates: start: 19991201, end: 20050101
  11. ZOLOFT [Concomitant]
     Dosage: 50 MG TO 100 MG
     Dates: start: 19980410
  12. CHLORPROMAZINE [Concomitant]
     Dates: start: 19990129
  13. PAXIL [Concomitant]
     Dates: start: 20000131

REACTIONS (11)
  - TYPE 2 DIABETES MELLITUS [None]
  - HYPERKERATOSIS [None]
  - MUSCULOSKELETAL PAIN [None]
  - HYPERLIPIDAEMIA [None]
  - OBESITY [None]
  - HYPERTENSION [None]
  - ABDOMINAL PAIN [None]
  - NECK PAIN [None]
  - BLOOD CHOLESTEROL INCREASED [None]
  - PAIN IN EXTREMITY [None]
  - ANXIETY [None]
